FAERS Safety Report 8510200-7 (Version None)
Quarter: 2012Q3

REPORT INFORMATION
  Report Type: 
  Country: None (occurrence: None)
  Receive Date: 20120713
  Receipt Date: 20120703
  Transmission Date: 20120928
  Serious: No
  Sender: FDA-Public Use
  Company Number: US-ASTRAZENECA-2012SE45875

PATIENT
  Age: 62 Year
  Sex: Male

DRUGS (11)
  1. TOPROL-XL [Concomitant]
  2. NITROSTAT [Concomitant]
     Dosage: 0.4
  3. ASPIRIN [Concomitant]
  4. GLUCOTROL XL [Concomitant]
  5. HYDROCHLOROTHIAZIDE [Concomitant]
  6. FISH OIL [Concomitant]
  7. LISINOPRIL [Suspect]
     Route: 048
  8. CRESTOR [Concomitant]
  9. VITAMIN D [Concomitant]
     Dosage: 100
  10. UNITTAB [Concomitant]
  11. METFORMIN HCL [Concomitant]
     Dosage: 2 X 5 A DAY

REACTIONS (1)
  - DRUG HYPERSENSITIVITY [None]
